FAERS Safety Report 12854358 (Version 38)
Quarter: 2022Q2

REPORT INFORMATION
  Report Type: Report from Study
  Country: CA (occurrence: CA)
  Receive Date: 20161017
  Receipt Date: 20220524
  Transmission Date: 20220720
  Serious: Yes (Hospitalization, Other)
  Sender: FDA-Public Use
  Company Number: PHHY2016CA048557

PATIENT
  Age: 59 Year
  Sex: Male

DRUGS (6)
  1. SANDOSTATIN LAR DEPOT [Suspect]
     Active Substance: OCTREOTIDE ACETATE
     Indication: Carcinoid tumour
     Dosage: 30 MG, Q4W (EVERY 4 WEEKS)
     Route: 030
     Dates: start: 20160311
  2. SANDOSTATIN LAR DEPOT [Suspect]
     Active Substance: OCTREOTIDE ACETATE
  3. SANDOSTATIN LAR DEPOT [Suspect]
     Active Substance: OCTREOTIDE ACETATE
  4. INSULIN NOS [Concomitant]
     Active Substance: INSULIN NOS
     Indication: Diabetes mellitus
     Dosage: UNK
     Route: 065
  5. JANUVIA [Concomitant]
     Active Substance: SITAGLIPTIN PHOSPHATE
     Indication: Product used for unknown indication
     Dosage: UNK
     Route: 065
  6. LANTUS [Concomitant]
     Active Substance: INSULIN GLARGINE
     Indication: Product used for unknown indication
     Dosage: UNK
     Route: 065

REACTIONS (18)
  - Cerebrovascular accident [Unknown]
  - Loss of consciousness [Unknown]
  - Dizziness [Unknown]
  - Heart rate irregular [Unknown]
  - Umbilical hernia [Not Recovered/Not Resolved]
  - Abdominal discomfort [Unknown]
  - Blood pressure systolic increased [Unknown]
  - Abdominal hernia [Unknown]
  - Pancreatic mass [Unknown]
  - Body temperature decreased [Unknown]
  - Back pain [Recovered/Resolved]
  - Oxygen saturation decreased [Unknown]
  - Renal pain [Unknown]
  - Mass [Unknown]
  - Blood pressure increased [Unknown]
  - Limb injury [Unknown]
  - Erythema [Unknown]
  - Diarrhoea [Unknown]

NARRATIVE: CASE EVENT DATE: 20160408
